FAERS Safety Report 10098447 (Version 1)
Quarter: 2014Q2

REPORT INFORMATION
  Report Type: Spontaneous
  Country: US (occurrence: US)
  Receive Date: 20140423
  Receipt Date: 20140423
  Transmission Date: 20141212
  Serious: No
  Sender: FDA-Public Use
  Company Number: US-PFIZER INC-2014111076

PATIENT
  Age: 46 Year
  Sex: Female

DRUGS (3)
  1. LYRICA [Suspect]
     Dosage: 75 MG, 2X/DAY
  2. METHOTREXATE [Concomitant]
     Dosage: 2.5 MG, 4X/DAY
  3. FOLIC ACID [Concomitant]
     Dosage: 1 MG, 1X/DAY

REACTIONS (2)
  - Off label use [Unknown]
  - Drug hypersensitivity [Unknown]
